FAERS Safety Report 11605985 (Version 1)
Quarter: 2015Q4

REPORT INFORMATION
  Report Type: Spontaneous
  Country: US (occurrence: US)
  Receive Date: 20151007
  Receipt Date: 20151007
  Transmission Date: 20160304
  Serious: No
  Sender: FDA-Public Use
  Company Number: US-009507513-1510USA002448

PATIENT
  Age: 34 Year
  Sex: Male

DRUGS (4)
  1. SINGULAIR [Concomitant]
     Active Substance: MONTELUKAST SODIUM
     Dosage: UNK
     Route: 048
  2. NASONEX [Suspect]
     Active Substance: MOMETASONE FUROATE
     Indication: ANTIALLERGIC THERAPY
     Dosage: 50 MCG/2 SPRAYS IN EACH NOSTRIL ONCE A DAY
     Route: 045
  3. OLOPATADINE HYDROCHLORIDE. [Concomitant]
     Active Substance: OLOPATADINE HYDROCHLORIDE
     Dosage: UNK
  4. ASMANEX HFA [Concomitant]
     Active Substance: MOMETASONE FUROATE
     Dosage: UNK

REACTIONS (4)
  - Nasopharyngitis [Not Recovered/Not Resolved]
  - Sinus operation [Not Recovered/Not Resolved]
  - Drug dose omission [Unknown]
  - Nasal congestion [Not Recovered/Not Resolved]

NARRATIVE: CASE EVENT DATE: 201509
